FAERS Safety Report 7919084-9 (Version None)
Quarter: 2011Q4

REPORT INFORMATION
  Report Type: 
  Country: None (occurrence: None)
  Receive Date: 20111116
  Receipt Date: 20111107
  Transmission Date: 20120403
  Serious: Yes (Other)
  Sender: FDA-Public Use
  Company Number: CA-ASTRAZENECA-2011SE67517

PATIENT
  Age: 56 Year
  Sex: Male
  Weight: 104.3 kg

DRUGS (7)
  1. WELLBUTRIN XL [Suspect]
     Route: 048
  2. HORSE CHESTNUT EXTRACT [Concomitant]
     Route: 048
  3. CLONAZEPAM [Suspect]
     Route: 048
  4. ECHINACEA [Concomitant]
     Route: 048
  5. ESCITALOPRAM [Suspect]
     Route: 048
  6. MILK THISTLE [Concomitant]
     Route: 048
  7. SEROQUEL [Suspect]
     Route: 048

REACTIONS (14)
  - SUICIDAL IDEATION [None]
  - INCREASED APPETITE [None]
  - WEIGHT INCREASED [None]
  - MUSCULAR WEAKNESS [None]
  - CONSTIPATION [None]
  - FATIGUE [None]
  - DEPRESSION [None]
  - TINNITUS [None]
  - DIZZINESS [None]
  - TREMOR [None]
  - NAUSEA [None]
  - DRY MOUTH [None]
  - ERECTION INCREASED [None]
  - SOMNOLENCE [None]
